FAERS Safety Report 14938428 (Version 1)
Quarter: 2018Q2

REPORT INFORMATION
  Report Type: Spontaneous
  Country: GR (occurrence: GR)
  Receive Date: 20180525
  Receipt Date: 20180525
  Transmission Date: 20180711
  Serious: Yes (Other)
  Sender: FDA-Public Use
  Company Number: GR-JNJFOC-20180531475

PATIENT
  Age: 87 Year
  Sex: Female

DRUGS (1)
  1. XARELTO [Suspect]
     Active Substance: RIVAROXABAN
     Indication: ATRIAL FIBRILLATION
     Route: 048
     Dates: start: 2018

REACTIONS (5)
  - Hepatic neoplasm [Unknown]
  - Activated partial thromboplastin time prolonged [Unknown]
  - Gamma-glutamyltransferase increased [Unknown]
  - Gastrointestinal carcinoma [Unknown]
  - Transaminases increased [Unknown]

NARRATIVE: CASE EVENT DATE: 2018
